FAERS Safety Report 8426526-1 (Version None)
Quarter: 2012Q2

REPORT INFORMATION
  Report Type: 
  Country: None (occurrence: None)
  Receive Date: 20120611
  Receipt Date: 20120606
  Transmission Date: 20120825
  Serious: No
  Sender: FDA-Public Use
  Company Number: VE-PFIZER INC-2012133857

PATIENT
  Age: 59 Year
  Sex: Female

DRUGS (1)
  1. LYRICA [Suspect]
     Indication: PARAPLEGIA
     Dosage: 75 MG, 1X/DAY
     Route: 048
     Dates: start: 20060101

REACTIONS (1)
  - NO ADVERSE EVENT [None]
